FAERS Safety Report 4840281-3 (Version None)
Quarter: 2005Q4

REPORT INFORMATION
  Report Type: 
  Country: None (occurrence: None)
  Receive Date: 20051129
  Receipt Date: 20051003
  Transmission Date: 20060501
  Serious: Yes (Hospitalization, Other)
  Sender: FDA-Public Use
  Company Number: US-MERCK-0510USA02494

PATIENT
  Age: 66 Year
  Sex: Female
  Weight: 95 kg

DRUGS (7)
  1. VIOXX [Suspect]
     Indication: PAIN IN EXTREMITY
     Route: 048
     Dates: start: 20010101, end: 20041006
  2. POTASSIUM (UNSPECIFIED) [Concomitant]
     Route: 065
  3. HYZAAR [Concomitant]
     Route: 065
  4. ATENOLOL [Concomitant]
     Route: 065
  5. BENICAR [Concomitant]
     Route: 065
  6. VALIUM [Concomitant]
     Route: 065
  7. GLUCOPHAGE [Concomitant]
     Route: 065

REACTIONS (2)
  - CEREBROVASCULAR ACCIDENT [None]
  - HOSPITALISATION [None]
